FAERS Safety Report 7569187-6 (Version None)
Quarter: 2011Q2

REPORT INFORMATION
  Report Type: 
  Country: None (occurrence: None)
  Receive Date: 20110623
  Receipt Date: 20110609
  Transmission Date: 20111010
  Serious: Yes (Other)
  Sender: FDA-Public Use
  Company Number: PHHY2011BR54978

PATIENT
  Sex: Female

DRUGS (4)
  1. EXFORGE [Suspect]
     Dosage: 1DF (160/5MG) DAILY
     Route: 048
  2. EXFORGE [Suspect]
     Dosage: 1DF (160/10MG) DAILY
  3. EXFORGE [Suspect]
     Indication: HYPERTENSION
     Dosage: 160 MG OF VALSARTAN AND 5 MG OF AMLODIPIN, ONCE DAILY
     Route: 048
  4. MODURETIC 5-50 [Concomitant]
     Dosage: 1 DF DAILY
     Route: 048

REACTIONS (11)
  - PAIN IN EXTREMITY [None]
  - MICTURITION URGENCY [None]
  - COUGH [None]
  - SWELLING [None]
  - PARAESTHESIA [None]
  - HYPOAESTHESIA [None]
  - POLLAKIURIA [None]
  - SKIN HYPERTROPHY [None]
  - NASAL CONGESTION [None]
  - SOMNOLENCE [None]
  - ERYTHEMA [None]
